FAERS Safety Report 6334448-5 (Version None)
Quarter: 2009Q3

REPORT INFORMATION
  Report Type: 
  Country: None (occurrence: None)
  Receive Date: 20090827
  Receipt Date: 20090817
  Transmission Date: 20100115
  Serious: Yes (Hospitalization)
  Sender: FDA-Public Use
  Company Number: 2008AL011329

PATIENT
  Age: 78 Year
  Sex: Male
  Weight: 78 kg

DRUGS (13)
  1. DIGOXIN [Suspect]
     Indication: ATRIAL FIBRILLATION
     Dosage: 0.125MG, PO
     Route: 048
  2. VERAPAMIL [Concomitant]
  3. WARFARIN SODIUM [Concomitant]
  4. RAMIPRIL [Concomitant]
  5. FUROSEMIDE [Concomitant]
  6. AZITHROMYCIN [Concomitant]
  7. SODIUM BICARONATE [Concomitant]
  8. CEFTRIAXONE [Concomitant]
  9. ONDANSETRON [Concomitant]
  10. ALTACE [Concomitant]
  11. AMOXICILLIN [Concomitant]
  12. COZAAR [Concomitant]
  13. HYZAAR [Concomitant]

REACTIONS (31)
  - ANHEDONIA [None]
  - ANXIETY [None]
  - AORTIC VALVE INCOMPETENCE [None]
  - APPARENT DEATH [None]
  - BLOOD POTASSIUM INCREASED [None]
  - BONE PAIN [None]
  - CARDIAC MURMUR [None]
  - CARDIOMYOPATHY [None]
  - CHEST PAIN [None]
  - COLD SWEAT [None]
  - CONGESTIVE CARDIOMYOPATHY [None]
  - DRUG TOXICITY [None]
  - DYSPNOEA [None]
  - EJECTION FRACTION DECREASED [None]
  - EMOTIONAL DISTRESS [None]
  - FATIGUE [None]
  - HEART RATE IRREGULAR [None]
  - HYPERKALAEMIA [None]
  - ILL-DEFINED DISORDER [None]
  - INCORRECT DOSE ADMINISTERED [None]
  - INJURY [None]
  - IRRITABILITY [None]
  - LEFT ATRIAL DILATATION [None]
  - MITRAL VALVE INCOMPETENCE [None]
  - PAIN [None]
  - PALPITATIONS [None]
  - PULMONARY VALVE INCOMPETENCE [None]
  - SPEECH DISORDER [None]
  - THERAPEUTIC AGENT TOXICITY [None]
  - TRICUSPID VALVE INCOMPETENCE [None]
  - VISUAL IMPAIRMENT [None]
